FAERS Safety Report 5241464-3 (Version None)
Quarter: 2007Q1

REPORT INFORMATION
  Report Type: 
  Country: None (occurrence: None)
  Receive Date: 20070215
  Receipt Date: 20070215
  Transmission Date: 20070707
  Serious: Yes (Hospitalization)
  Sender: FDA-Public Use
  Company Number: None

PATIENT
  Sex: Male
  Weight: 23.6 kg

DRUGS (2)
  1. FOCALIN XR [Suspect]
     Indication: ATTENTION DEFICIT/HYPERACTIVITY DISORDER
     Dosage: 10MG DAILY ORAL
     Route: 048
     Dates: start: 20070113, end: 20070116
  2. . [Concomitant]

REACTIONS (4)
  - AGITATION [None]
  - HALLUCINATION, VISUAL [None]
  - MYDRIASIS [None]
  - PSYCHOTIC DISORDER [None]
